FAERS Safety Report 7037119-5 (Version None)
Quarter: 2010Q4

REPORT INFORMATION
  Report Type: 
  Country: None (occurrence: None)
  Receive Date: 20101011
  Receipt Date: 20101001
  Transmission Date: 20110411
  Serious: Yes (Hospitalization)
  Sender: FDA-Public Use
  Company Number: US-ABBOTT-10P-163-0675310-00

PATIENT
  Sex: Female
  Weight: 86 kg

DRUGS (8)
  1. SYNTHROID [Suspect]
     Indication: HYPOTHYROIDISM
     Route: 048
     Dates: start: 20020101, end: 20100901
  2. SYNTHROID [Suspect]
  3. REBIF [Suspect]
     Indication: MULTIPLE SCLEROSIS
     Route: 058
     Dates: start: 20100813
  4. REBIF [Suspect]
     Route: 058
     Dates: start: 20100901
  5. GLUCOPHAGE [Concomitant]
     Indication: DIABETES MELLITUS
  6. AMARYL [Concomitant]
     Indication: DIABETES MELLITUS
  7. LISINOPRIL [Concomitant]
     Indication: HYPERTENSION
  8. ZOCOR [Concomitant]
     Indication: BLOOD CHOLESTEROL INCREASED

REACTIONS (2)
  - THYROID FUNCTION TEST ABNORMAL [None]
  - VENTRICULAR EXTRASYSTOLES [None]
